FAERS Safety Report 13939032 (Version 1)
Quarter: 2017Q3

REPORT INFORMATION
  Report Type: Spontaneous
  Country: US (occurrence: US)
  Receive Date: 20170906
  Receipt Date: 20170906
  Transmission Date: 20171127
  Serious: No
  Sender: FDA-Public Use
  Company Number: US-TEVA-760756USA

PATIENT
  Sex: Female

DRUGS (2)
  1. MONTELUKAST SODIUM. [Suspect]
     Active Substance: MONTELUKAST SODIUM
     Indication: RHINITIS ALLERGIC
  2. MONTELUKAST SODIUM. [Suspect]
     Active Substance: MONTELUKAST SODIUM
     Indication: ASTHMA
     Route: 065
     Dates: start: 20170203

REACTIONS (6)
  - Blood pressure increased [Unknown]
  - Weight increased [Unknown]
  - Abdominal distension [Unknown]
  - Swelling face [Unknown]
  - Drug ineffective [Unknown]
  - Oedema [Unknown]
